FAERS Safety Report 21303044 (Version 2)
Quarter: 2023Q1

REPORT INFORMATION
  Report Type: Report from Study
  Country: JP (occurrence: JP)
  Receive Date: 20220907
  Receipt Date: 20230209
  Transmission Date: 20230418
  Serious: Yes (Life-Threatening, Hospitalization)
  Sender: FDA-Public Use
  Company Number: JP-ELI_LILLY_AND_COMPANY-JP202208011033

PATIENT
  Age: 94 Year
  Sex: Female
  Weight: 40 kg

DRUGS (1)
  1. RETEVMO [Suspect]
     Active Substance: SELPERCATINIB
     Indication: Thyroid cancer stage IV
     Dosage: 240 MG, UNKNOWN
     Route: 048
     Dates: start: 20220809, end: 20220825

REACTIONS (3)
  - Abscess neck [Recovering/Resolving]
  - Oropharyngeal fistula [Recovering/Resolving]
  - Tumour necrosis [Unknown]

NARRATIVE: CASE EVENT DATE: 20220823
